FAERS Safety Report 5608650-1 (Version None)
Quarter: 2008Q1

REPORT INFORMATION
  Report Type: 
  Country: None (occurrence: None)
  Receive Date: 20080130
  Receipt Date: 20080118
  Transmission Date: 20080703
  Serious: Yes (Life-Threatening)
  Sender: FDA-Public Use
  Company Number: FR-PFIZER INC-2008005830

PATIENT
  Age: 70 Year
  Sex: Female

DRUGS (9)
  1. DEPO-MEDROL [Suspect]
     Route: 037
     Dates: start: 19960614, end: 19960614
  2. DEPO-MEDROL [Suspect]
  3. METHOTREXATE [Suspect]
     Route: 037
     Dates: start: 19960614, end: 19960614
  4. CONTRAST MEDIA [Suspect]
     Indication: NUCLEAR MAGNETIC RESONANCE IMAGING
     Dosage: TEXT:1 DF
     Route: 042
     Dates: start: 19960619, end: 19960619
  5. ALL OTHER THERAPEUTIC PRODUCTS [Concomitant]
  6. RANITIDINE HYDROCHLORIDE [Concomitant]
  7. METOCLOPRAMIDE [Concomitant]
  8. MORPHINE SULFATE [Concomitant]
  9. CASCARA TAB [Concomitant]

REACTIONS (1)
  - TOXIC EPIDERMAL NECROLYSIS [None]
